FAERS Safety Report 6071601-2 (Version None)
Quarter: 2009Q1

REPORT INFORMATION
  Report Type: 
  Country: None (occurrence: None)
  Receive Date: 20090205
  Receipt Date: 20090205
  Transmission Date: 20090719
  Serious: Yes (Other)
  Sender: FDA-Public Use
  Company Number: None

PATIENT
  Sex: Female
  Weight: 80.7403 kg

DRUGS (1)
  1. CHANTIX [Suspect]
     Indication: SMOKING CESSATION THERAPY
     Dosage: VARIED ACCORDING TO INTERIST DIRECTIONS
     Dates: start: 20070301, end: 20070901

REACTIONS (2)
  - NEUROPATHY PERIPHERAL [None]
  - TRIGGER FINGER [None]
